FAERS Safety Report 4576138-5 (Version None)
Quarter: 2005Q1

REPORT INFORMATION
  Report Type: 
  Country: None (occurrence: None)
  Receive Date: 20050201
  Receipt Date: 20050201
  Transmission Date: 20050727
  Serious: Yes (Other)
  Sender: FDA-Public Use
  Company Number: None

PATIENT
  Sex: Female
  Weight: 117.9352 kg

DRUGS (1)
  1. EFFEXOR XR [Suspect]
     Dosage: PO

REACTIONS (1)
  - DRUG SCREEN FALSE POSITIVE [None]
